FAERS Safety Report 17052389 (Version 1)
Quarter: 2019Q4

REPORT INFORMATION
  Report Type: Spontaneous
  Country: US (occurrence: US)
  Receive Date: 20191119
  Receipt Date: 20191119
  Transmission Date: 20200122
  Serious: No
  Sender: FDA-Public Use
  Company Number: None

PATIENT
  Age: 40 Year
  Sex: Female
  Weight: 76.5 kg

DRUGS (16)
  1. LYRICA [Suspect]
     Active Substance: PREGABALIN
     Indication: NEURALGIA
     Dosage: ?          QUANTITY:1 CAPSULE(S);?
     Route: 048
     Dates: start: 20180915, end: 20180918
  2. MOVANTIK [Concomitant]
     Active Substance: NALOXEGOL OXALATE
  3. HYDROXYZINE [Concomitant]
     Active Substance: HYDROXYZINE HYDROCHLORIDE
  4. TRAMADOL. [Concomitant]
     Active Substance: TRAMADOL
  5. TIZANIDINE. [Concomitant]
     Active Substance: TIZANIDINE
  6. FROVATRIPTAN. [Concomitant]
     Active Substance: FROVATRIPTAN
  7. GABAPENTIN. [Concomitant]
     Active Substance: GABAPENTIN
  8. CHANTIX [Concomitant]
     Active Substance: VARENICLINE TARTRATE
  9. BUPROPION XL [Concomitant]
     Active Substance: BUPROPION
  10. CA 600 [Concomitant]
  11. LYRICA [Concomitant]
     Active Substance: PREGABALIN
  12. BELBUCA [Concomitant]
     Active Substance: BUPRENORPHINE HYDROCHLORIDE
  13. LEVOTHYROXINE. [Concomitant]
     Active Substance: LEVOTHYROXINE
  14. VIT D [Concomitant]
     Active Substance: VITAMIN D NOS
  15. ALCOHOL. [Concomitant]
     Active Substance: ALCOHOL
  16. OXYCODONE [Concomitant]
     Active Substance: OXYCODONE

REACTIONS (4)
  - Procedural pain [None]
  - Therapy cessation [None]
  - Myoclonus [None]
  - Insomnia [None]

NARRATIVE: CASE EVENT DATE: 20180915
